FAERS Safety Report 13010908 (Version 2)
Quarter: 2016Q4

REPORT INFORMATION
  Report Type: Report from Study
  Country: FR (occurrence: FR)
  Receive Date: 20161208
  Receipt Date: 20161223
  Transmission Date: 20170207
  Serious: Yes (Death, Hospitalization)
  Sender: FDA-Public Use
  Company Number: FR-BIOGEN-2013BI074410

PATIENT
  Age: 61 Year
  Sex: Female
  Weight: 48 kg

DRUGS (6)
  1. FAMPYRA [Suspect]
     Active Substance: DALFAMPRIDINE
     Indication: MULTIPLE SCLEROSIS
     Route: 048
     Dates: start: 20130410, end: 20130423
  2. EZOMEPRAZOLE [Concomitant]
     Route: 065
     Dates: start: 20050926
  3. NORDAZEPAM [Concomitant]
     Active Substance: NORDAZEPAM
     Route: 065
     Dates: start: 20040528
  4. DULOXETINE. [Concomitant]
     Active Substance: DULOXETINE
     Route: 065
     Dates: start: 20090602
  5. HYDROCORTISONE. [Concomitant]
     Active Substance: HYDROCORTISONE
     Route: 065
     Dates: start: 20050926
  6. OXYBUTININE [Concomitant]
     Active Substance: OXYBUTYNIN
     Route: 065
     Dates: start: 20130114

REACTIONS (1)
  - Myocardial infarction [Fatal]

NARRATIVE: CASE EVENT DATE: 20130628
